FAERS Safety Report 5035184-8 (Version None)
Quarter: 2006Q2

REPORT INFORMATION
  Report Type: 
  Country: None (occurrence: None)
  Receive Date: 20060622
  Receipt Date: 20060530
  Transmission Date: 20061013
  Serious: Yes (Hospitalization)
  Sender: FDA-Public Use
  Company Number: 6022985

PATIENT
  Age: 76 Year
  Sex: Male

DRUGS (3)
  1. BISOPROLOL FUMARATE [Suspect]
     Indication: ANGINA PECTORIS
     Dosage: ORAL
     Route: 048
     Dates: start: 20060501, end: 20060508
  2. ASPIRIN [Concomitant]
  3. SIMVASTATIN [Concomitant]

REACTIONS (3)
  - CHEST DISCOMFORT [None]
  - DYSPNOEA [None]
  - WHEEZING [None]
